FAERS Safety Report 18649636 (Version 4)
Quarter: 2021Q4

REPORT INFORMATION
  Report Type: Spontaneous
  Country: US (occurrence: US)
  Receive Date: 20201222
  Receipt Date: 20211117
  Transmission Date: 20220303
  Serious: No
  Sender: FDA-Public Use
  Company Number: US-PFIZER INC-2020502896

PATIENT
  Age: 66 Year
  Sex: Female
  Weight: 92.53 kg

DRUGS (3)
  1. GEMCITABINE HYDROCHLORIDE [Suspect]
     Active Substance: GEMCITABINE HYDROCHLORIDE
     Dosage: UNK, CYCLIC (THREE WEEKS IN A ROW AND ONE WEEK OFF)
     Dates: start: 20201207
  2. GEMCITABINE HYDROCHLORIDE [Suspect]
     Active Substance: GEMCITABINE HYDROCHLORIDE
     Dosage: UNK
     Dates: start: 20201214
  3. GEMCITABINE HYDROCHLORIDE [Suspect]
     Active Substance: GEMCITABINE HYDROCHLORIDE
     Dosage: 2270 MG(ADMINISTERED BY INFUSION FOR 30 MINUTES FOR 3 WEEKS IN A ROW ON MON AND THEN A WEEK OFF)

REACTIONS (3)
  - Chest pain [Unknown]
  - Head discomfort [Unknown]
  - Bone pain [Unknown]

NARRATIVE: CASE EVENT DATE: 20201201
